FAERS Safety Report 10192684 (Version 1)
Quarter: 2014Q2

REPORT INFORMATION
  Report Type: Report from Study
  Country: BO (occurrence: BO)
  Receive Date: 20140523
  Receipt Date: 20140523
  Transmission Date: 20141212
  Serious: Yes (Other)
  Sender: FDA-Public Use
  Company Number: PHHY2014BO061644

PATIENT
  Sex: Male

DRUGS (1)
  1. GLIVEC [Suspect]
     Indication: CHRONIC MYELOID LEUKAEMIA
     Dosage: 400 MG, UNK
     Route: 048

REACTIONS (6)
  - Pancreatic carcinoma [Unknown]
  - Metastases to stomach [Unknown]
  - Second primary malignancy [Unknown]
  - Asthenia [Unknown]
  - Weight decreased [Unknown]
  - Alopecia [Unknown]
